FAERS Safety Report 9056801 (Version 1)
Quarter: 2013Q1

REPORT INFORMATION
  Report Type: Spontaneous
  Country: TR (occurrence: TR)
  Receive Date: 20130201
  Receipt Date: 20130201
  Transmission Date: 20140127
  Serious: Yes (Hospitalization)
  Sender: FDA-Public Use
  Company Number: TR-GLAXOSMITHKLINE-B0863525A

PATIENT
  Age: 51 Year
  Sex: Female

DRUGS (4)
  1. NIQUITIN CQ 4MG LOZENGE [Suspect]
     Indication: EX-TOBACCO USER
     Route: 048
  2. METFORMIN [Concomitant]
     Route: 048
  3. GLIMEPIRIDE [Concomitant]
     Route: 048
  4. LANTUS [Concomitant]
     Route: 058

REACTIONS (4)
  - Pruritus [Not Recovered/Not Resolved]
  - Headache [Recovered/Resolved]
  - Vomiting [Unknown]
  - Hypertension [Unknown]
